FAERS Safety Report 7604496-3 (Version None)
Quarter: 2011Q3

REPORT INFORMATION
  Report Type: 
  Country: None (occurrence: None)
  Receive Date: 20110712
  Receipt Date: 20110627
  Transmission Date: 20111222
  Serious: Yes (Hospitalization)
  Sender: FDA-Public Use
  Company Number: AU-UCBSA-034363

PATIENT
  Sex: Male
  Weight: 95.6 kg

DRUGS (5)
  1. ZYPREXA [Concomitant]
     Indication: DEPRESSION
     Route: 048
     Dates: start: 20110411
  2. CERTOLIZUMAB PEGOL [Suspect]
     Route: 058
     Dates: start: 20110621
  3. CERTOLIZUMAB PEGOL [Suspect]
     Indication: CROHN'S DISEASE
     Dosage: FOR FIRST 3 DOSES; 400 MG 1 TIME EVERY 2 WEEKS
     Route: 058
     Dates: start: 20090601
  4. CERTOLIZUMAB PEGOL [Suspect]
     Route: 058
     Dates: end: 20100819
  5. CERTOLIZUMAB PEGOL [Suspect]
     Route: 058
     Dates: start: 20101026, end: 20110405

REACTIONS (11)
  - LUMBAR RADICULOPATHY [None]
  - RED BLOOD CELL COUNT DECREASED [None]
  - ASPARTATE AMINOTRANSFERASE INCREASED [None]
  - HAEMOGLOBIN DECREASED [None]
  - SCIATICA [None]
  - SURGERY [None]
  - GAMMA-GLUTAMYLTRANSFERASE INCREASED [None]
  - BLOOD SODIUM DECREASED [None]
  - ALANINE AMINOTRANSFERASE INCREASED [None]
  - DEPRESSION [None]
  - HYPERTENSION [None]
